FAERS Safety Report 15594754 (Version 3)
Quarter: 2019Q1

REPORT INFORMATION
  Report Type: Spontaneous
  Country: US (occurrence: US)
  Receive Date: 20181106
  Receipt Date: 20190307
  Transmission Date: 20190417
  Serious: No
  Sender: FDA-Public Use
  Company Number: US-SA-2018SA304233

PATIENT
  Age: 65 Year
  Sex: Female

DRUGS (1)
  1. TOUJEO [Suspect]
     Active Substance: INSULIN GLARGINE
     Indication: TYPE 2 DIABETES MELLITUS
     Dosage: 30 U, QD(EVERY PM)
     Route: 065

REACTIONS (4)
  - Visual impairment [Unknown]
  - Drug effect incomplete [Unknown]
  - Product storage error [Unknown]
  - Blood glucose fluctuation [Unknown]
